FAERS Safety Report 9935334 (Version 2)
Quarter: 2014Q1

REPORT INFORMATION
  Report Type: Spontaneous
  Country: US (occurrence: US)
  Receive Date: 20140228
  Receipt Date: 20140326
  Transmission Date: 20141002
  Serious: No
  Sender: FDA-Public Use
  Company Number: US-PFIZER INC-2014056981

PATIENT
  Age: 57 Year
  Sex: Male

DRUGS (5)
  1. GEODON [Suspect]
     Dosage: 2 DOSE OF 60 MG, 1X/DAY (DINNER)
     Route: 048
     Dates: start: 20131011, end: 20131106
  2. VALPROIC ACID [Suspect]
     Dosage: UNK
  3. DEPAKOTE [Suspect]
     Dosage: 500 MG (2 DOSE OF 250 MG), 3X/DAY
     Route: 048
     Dates: start: 2002, end: 20110906
  4. VENLAFAXINE [Concomitant]
     Indication: DEPRESSION
     Dosage: 100 MG, 3X/DAY
     Dates: start: 2002, end: 201401
  5. REQUIP [Concomitant]
     Indication: RESTLESS LEGS SYNDROME
     Dosage: 3 MG, 2X/DAY
     Dates: start: 20120330

REACTIONS (4)
  - Drug hypersensitivity [Unknown]
  - Nausea [Recovered/Resolved]
  - Confusional state [Recovered/Resolved]
  - Fall [Recovered/Resolved]
